FAERS Safety Report 5442072-1 (Version None)
Quarter: 2007Q3

REPORT INFORMATION
  Report Type: 
  Country: None (occurrence: None)
  Receive Date: 20070904
  Receipt Date: 20070823
  Transmission Date: 20080115
  Serious: Yes (Hospitalization)
  Sender: FDA-Public Use
  Company Number: HQWYE793624AUG07

PATIENT
  Sex: Male

DRUGS (7)
  1. CORBIONAX [Suspect]
     Indication: ARRHYTHMIA
     Route: 048
     Dates: start: 20070605, end: 20070704
  2. KARDEGIC [Suspect]
     Indication: JOINT ARTHROPLASTY
     Route: 048
     Dates: start: 20070605
  3. ALLOPURINOL [Concomitant]
     Indication: GOUT
     Route: 048
  4. OLMESARTAN MEDOXOMIL [Concomitant]
     Indication: HYPERTENSION
     Route: 048
     Dates: start: 20070501, end: 20070704
  5. LIPANTHYL ^FOURNIER^ [Concomitant]
     Indication: HYPERCHOLESTEROLAEMIA
     Route: 048
  6. PLAVIX [Suspect]
     Indication: JOINT ARTHROPLASTY
     Route: 048
     Dates: start: 20070605, end: 20070704
  7. NEBIVOLOL HCL [Suspect]
     Indication: JOINT ARTHROPLASTY
     Route: 048
     Dates: start: 20070605

REACTIONS (1)
  - FEBRILE NEUTROPENIA [None]
